FAERS Safety Report 8419470-7 (Version None)
Quarter: 2012Q2

REPORT INFORMATION
  Report Type: 
  Country: None (occurrence: None)
  Receive Date: 20120607
  Receipt Date: 20120528
  Transmission Date: 20120825
  Serious: Yes (Hospitalization, Other)
  Sender: FDA-Public Use
  Company Number: JP-ELI_LILLY_AND_COMPANY-JP201203002555

PATIENT
  Age: 80 Year
  Sex: Female

DRUGS (12)
  1. STROCAIN [Concomitant]
     Dosage: UNK
  2. ETHYL ICOSAPENTATE [Concomitant]
     Dosage: UNK
  3. MAGMITT [Concomitant]
     Dosage: UNK
     Route: 048
  4. LITHIUM CARBONATE [Concomitant]
     Dosage: UNK
     Route: 048
     Dates: end: 20120220
  5. MUCOSTA [Concomitant]
     Dosage: UNK
     Route: 048
  6. ZOLPIDEM [Concomitant]
     Dosage: UNK
     Route: 048
  7. GASMOTIN [Concomitant]
     Dosage: UNK
     Route: 048
  8. ZYPREXA [Suspect]
     Dosage: 10 MG, QD
     Route: 048
     Dates: start: 20111209, end: 20120217
  9. ZYPREXA [Suspect]
     Indication: BIPOLAR DISORDER
     Route: 048
  10. AVAPRO [Concomitant]
     Dosage: UNK
     Route: 048
  11. ATELEC [Concomitant]
     Dosage: UNK
  12. LANSOPRAZOLE [Concomitant]
     Dosage: UNK
     Route: 048

REACTIONS (2)
  - INFECTION [None]
  - NEUROLEPTIC MALIGNANT SYNDROME [None]
